FAERS Safety Report 6565887-5 (Version None)
Quarter: 2010Q1

REPORT INFORMATION
  Report Type: 
  Country: None (occurrence: None)
  Receive Date: 20100127
  Receipt Date: 20100115
  Transmission Date: 20100710
  Serious: Yes (Hospitalization, Other)
  Sender: FDA-Public Use
  Company Number: 2010SP003884

PATIENT
  Sex: Female
  Weight: 49 kg

DRUGS (1)
  1. MERCILON (DESOGESTREL/ETHINYLESTRADIOL /00570801/) [Suspect]
     Indication: CONTRACEPTION
     Dates: start: 20080901, end: 20090912

REACTIONS (8)
  - ASTHENIA [None]
  - BLOOD CREATINE PHOSPHOKINASE INCREASED [None]
  - DIZZINESS [None]
  - DYSPNOEA [None]
  - ELECTROMYOGRAM ABNORMAL [None]
  - HYPERVENTILATION [None]
  - MUSCLE SPASMS [None]
  - PAIN [None]
